FAERS Safety Report 10630766 (Version 2)
Quarter: 2015Q1

REPORT INFORMATION
  Report Type: Spontaneous
  Country: US (occurrence: US)
  Receive Date: 20141205
  Receipt Date: 20150109
  Transmission Date: 20150720
  Serious: No
  Sender: FDA-Public Use
  Company Number: US-BRISTOL-MYERS SQUIBB COMPANY-21632997

PATIENT
  Sex: Male

DRUGS (8)
  1. FAMOTIDINE. [Concomitant]
     Active Substance: FAMOTIDINE
  2. YERVOY [Suspect]
     Active Substance: IPILIMUMAB
     Indication: METASTATIC MALIGNANT MELANOMA
     Dosage: 3 MG/KG, UNK
     Route: 042
     Dates: start: 20140326
  3. YERVOY [Suspect]
     Active Substance: IPILIMUMAB
     Dosage: 3 UNK, UNK
     Route: 042
     Dates: start: 20140828
  4. ATIVAN [Concomitant]
     Active Substance: LORAZEPAM
  5. TAMSULOSIN [Concomitant]
     Active Substance: TAMSULOSIN
  6. TRAVATAN [Concomitant]
     Active Substance: TRAVOPROST
  7. YERVOY [Suspect]
     Active Substance: IPILIMUMAB
     Dosage: 3 UNK, UNK
     Route: 042
     Dates: start: 20140726
  8. TIMOLOL [Concomitant]
     Active Substance: TIMOLOL

REACTIONS (1)
  - Lymphocytic hypophysitis [Not Recovered/Not Resolved]

NARRATIVE: CASE EVENT DATE: 20140620
